FAERS Safety Report 6153986-1 (Version None)
Quarter: 2009Q2

REPORT INFORMATION
  Report Type: 
  Country: None (occurrence: None)
  Receive Date: 20090414
  Receipt Date: 20090402
  Transmission Date: 20091009
  Serious: Yes (Other)
  Sender: FDA-Public Use
  Company Number: JP-ELI_LILLY_AND_COMPANY-JP200903002161

PATIENT
  Sex: Female
  Weight: 52.6 kg

DRUGS (6)
  1. EVISTA [Suspect]
     Indication: BLOOD OESTROGEN DECREASED
     Dosage: 60 MG, DAILY (1/D)
     Route: 048
     Dates: start: 20080423, end: 20090304
  2. PEGASYS [Concomitant]
     Indication: HEPATITIS C
     Dosage: 180 UG, WEEKLY (1/W)
     Route: 058
     Dates: start: 20080423, end: 20090226
  3. COPEGUS [Concomitant]
     Indication: VIRAEMIA
     Dosage: 600 MG, 2/D
     Route: 048
     Dates: start: 20080423, end: 20080709
  4. COPEGUS [Concomitant]
     Dosage: 400 MG, 2/D
     Route: 048
     Dates: start: 20080710, end: 20090304
  5. PARIET [Concomitant]
     Route: 048
  6. MUCOSTA [Concomitant]
     Route: 048

REACTIONS (1)
  - RETINOPATHY HAEMORRHAGIC [None]
